FAERS Safety Report 9535989 (Version 1)
Quarter: 2013Q2

REPORT INFORMATION
  Report Type: Spontaneous
  Country: US (occurrence: None)
  Receive Date: 20130507
  Receipt Date: 20130507
  Transmission Date: 20140414
  Serious: Yes (Other)
  Sender: FDA-Public Use
  Company Number: PHEH2013US004897

PATIENT
  Age: 59 Year
  Sex: Female
  Weight: 56.7 kg

DRUGS (6)
  1. AFINITOR [Suspect]
     Route: 048
  2. EXEMESTANE [Concomitant]
  3. GLIPIZIDE [Concomitant]
  4. NATURALVITAMIN D (VITAMIN D NOS) [Concomitant]
  5. CALTRATE (CALCIUM CARBONATE) [Concomitant]
  6. METFORMIN [Concomitant]

REACTIONS (5)
  - Cheilitis [None]
  - Pain in extremity [None]
  - Fungal infection [None]
  - Nausea [None]
  - Insomnia [None]
